FAERS Safety Report 23219779 (Version 1)
Quarter: 2023Q4

REPORT INFORMATION
  Report Type: Other
  Country: US (occurrence: US)
  Receive Date: 20231122
  Receipt Date: 20231122
  Transmission Date: 20240109
  Serious: No
  Sender: FDA-Public Use
  Company Number: US-WW-2023-001253-LUN

PATIENT
  Age: 57 Year
  Sex: Female
  Weight: 81.65 kg

DRUGS (24)
  1. XYWAV [Suspect]
     Active Substance: CALCIUM OXYBATE\MAGNESIUM OXYBATE\POTASSIUM OXYBATE\SODIUM OXYBATE
     Indication: Hypersomnia
     Route: 048
  2. XYWAV [Suspect]
     Active Substance: CALCIUM OXYBATE\MAGNESIUM OXYBATE\POTASSIUM OXYBATE\SODIUM OXYBATE
     Indication: Hypersomnia
     Dosage: 2.25 GRAMS FOR THE FIRST DOSE AND 2.5 GRAMS FOR THE SECOND DOSE
     Route: 048
  3. XYWAV [Suspect]
     Active Substance: CALCIUM OXYBATE\MAGNESIUM OXYBATE\POTASSIUM OXYBATE\SODIUM OXYBATE
     Indication: Hypersomnia
     Route: 048
  4. XYWAV [Suspect]
     Active Substance: CALCIUM OXYBATE\MAGNESIUM OXYBATE\POTASSIUM OXYBATE\SODIUM OXYBATE
     Indication: Hypersomnia
     Route: 048
     Dates: start: 202301, end: 202304
  5. LUNESTA [Suspect]
     Active Substance: ESZOPICLONE
  6. DULOXETINE [Suspect]
     Active Substance: DULOXETINE
     Route: 048
  7. DULOXETINE [Suspect]
     Active Substance: DULOXETINE
     Indication: Spinal disorder
     Route: 048
     Dates: start: 20230202
  8. OXYCODONE [Suspect]
     Active Substance: OXYCODONE
     Dosage: DOSE UNKNOWN
  9. ADDERALL [Suspect]
     Active Substance: AMPHETAMINE ASPARTATE\AMPHETAMINE SULFATE\DEXTROAMPHETAMINE SACCHARATE\DEXTROAMPHETAMINE SULFATE
     Route: 048
  10. HYDROCORTISONE [Concomitant]
     Active Substance: HYDROCORTISONE
     Dosage: DOSE UNKNOWN
  11. ARIPIPRAZOLE [Concomitant]
     Active Substance: ARIPIPRAZOLE
     Dosage: DOSE UNKNOWN
  12. SUMATRIPTAN [Concomitant]
     Active Substance: SUMATRIPTAN
     Dosage: DOSE UNKNOWN
  13. Zyrtec Daiichii [Concomitant]
     Dosage: DOSE UNKNOWN
  14. Ondansertan ODT [Concomitant]
     Dosage: DOSE UNKNOWN
  15. VITAMIN C [Concomitant]
     Active Substance: ASCORBIC ACID
     Dosage: DOSE UNKNOWN
  16. FLUTICASONE [Concomitant]
     Active Substance: FLUTICASONE
     Dosage: DOSE UNKNOWN
  17. TRETINOIN [Concomitant]
     Active Substance: TRETINOIN
     Dosage: DOSE UNKNOWN
  18. ZINC [Concomitant]
     Active Substance: PYRITHIONE ZINC\ZINC\ZINC CHLORIDE
     Dosage: DOSE UNKNOWN
  19. EXCEDRIN [Concomitant]
     Active Substance: ACETAMINOPHEN\ASPIRIN\CAFFEINE
     Dosage: DOSE UNKNOWN
  20. AZELASTINE [Concomitant]
     Active Substance: AZELASTINE\AZELASTINE HYDROCHLORIDE
     Dosage: DOSE UNKNOWN
  21. ESTRADIOL [Concomitant]
     Active Substance: ESTRADIOL
     Dosage: DOSE UNKNOWN
  22. IRON [Concomitant]
     Active Substance: IRON
     Dosage: DOSE UNKNOWN
  23. ZOLMITRIPTAN [Concomitant]
     Active Substance: ZOLMITRIPTAN
     Dates: start: 20230301
  24. VYVANSE [Concomitant]
     Active Substance: LISDEXAMFETAMINE DIMESYLATE
     Dates: start: 20230313

REACTIONS (25)
  - Spinal disorder [Unknown]
  - Palpitations [Unknown]
  - Hypoaesthesia [Recovered/Resolved]
  - Peripheral swelling [Unknown]
  - Hyperventilation [Unknown]
  - Vertigo [Unknown]
  - Overweight [Unknown]
  - Dental operation [Unknown]
  - Illness [Unknown]
  - Bladder spasm [Unknown]
  - Withdrawal syndrome [Unknown]
  - Pollakiuria [Unknown]
  - Apathy [Unknown]
  - Insomnia [Unknown]
  - Memory impairment [Unknown]
  - Depression [Recovered/Resolved]
  - Nausea [Unknown]
  - Feeling drunk [Unknown]
  - Paraesthesia [Recovered/Resolved]
  - Panic attack [Unknown]
  - Headache [Unknown]
  - Anaemia [Unknown]
  - Arthralgia [Unknown]
  - Pre-existing condition improved [Recovered/Resolved]
  - Product administration interrupted [Unknown]

NARRATIVE: CASE EVENT DATE: 20230206
